FAERS Safety Report 13042662 (Version 2)
Quarter: 2017Q1

REPORT INFORMATION
  Report Type: Spontaneous
  Country: US (occurrence: US)
  Receive Date: 20161219
  Receipt Date: 20170120
  Transmission Date: 20170428
  Serious: Yes (Hospitalization, Other)
  Sender: FDA-Public Use
  Company Number: US-PFIZER INC-2016582529

PATIENT
  Age: 16 Year
  Sex: Female

DRUGS (11)
  1. BENZTROPINE MESYLATE. [Interacting]
     Active Substance: BENZTROPINE MESYLATE
     Dosage: UNK
  2. AZITHROMYCIN ANHYDROUS. [Concomitant]
     Active Substance: AZITHROMYCIN ANHYDROUS
     Indication: PNEUMONIA MYCOPLASMAL
     Dosage: UNK
  3. OLANZAPINE. [Interacting]
     Active Substance: OLANZAPINE
     Dosage: 17.5 MG, DAILY
  4. LORAZEPAM. [Interacting]
     Active Substance: LORAZEPAM
     Indication: ANXIETY
  5. RISPERIDONE. [Interacting]
     Active Substance: RISPERIDONE
     Indication: ANXIETY
     Dosage: UNK
  6. OLANZAPINE. [Interacting]
     Active Substance: OLANZAPINE
     Indication: ABNORMAL BEHAVIOUR
     Dosage: 2.5 MG, DAILY
  7. LORAZEPAM. [Interacting]
     Active Substance: LORAZEPAM
     Indication: ABNORMAL BEHAVIOUR
     Dosage: UNK, AS NEEDED
  8. FLUOXETINE [Interacting]
     Active Substance: FLUOXETINE HYDROCHLORIDE
     Indication: ANXIETY
     Dosage: UNK
  9. DIPHENHYDRAMINE HCL [Suspect]
     Active Substance: DIPHENHYDRAMINE HYDROCHLORIDE
     Indication: SLEEP DISORDER
     Dosage: UNK
  10. CLONAZEPAM. [Interacting]
     Active Substance: CLONAZEPAM
     Dosage: UNK
  11. CHLOROQUINE. [Interacting]
     Active Substance: CHLOROQUINE
     Indication: MALARIA PROPHYLAXIS
     Dosage: 250 MG, WEEKLY

REACTIONS (12)
  - Toxicity to various agents [Recovering/Resolving]
  - Toxic encephalopathy [Recovering/Resolving]
  - Insomnia [Recovering/Resolving]
  - Mydriasis [Recovering/Resolving]
  - Areflexia [Recovering/Resolving]
  - Condition aggravated [Recovering/Resolving]
  - Hallucination [Recovering/Resolving]
  - Drug interaction [Recovering/Resolving]
  - Paranoia [Recovering/Resolving]
  - Anxiety [Recovering/Resolving]
  - Facial paralysis [Recovering/Resolving]
  - Amaurosis [Recovering/Resolving]
